FAERS Safety Report 23873711 (Version 3)
Quarter: 2024Q2

REPORT INFORMATION
  Report Type: Spontaneous
  Country: US (occurrence: US)
  Receive Date: 20240520
  Receipt Date: 20240626
  Transmission Date: 20240716
  Serious: No
  Sender: FDA-Public Use
  Company Number: US-Eisai-EC-2024-164846

PATIENT
  Sex: Female

DRUGS (3)
  1. LEQEMBI [Suspect]
     Active Substance: LECANEMAB-IRMB
     Indication: Dementia
     Dosage: DOSE UNKNOWN
     Route: 042
  2. LEQEMBI [Suspect]
     Active Substance: LECANEMAB-IRMB
     Indication: Dementia Alzheimer^s type
  3. TYLENOL [Concomitant]
     Active Substance: ACETAMINOPHEN

REACTIONS (11)
  - Ageusia [Unknown]
  - Thirst [Unknown]
  - Confusional state [Unknown]
  - Gait disturbance [Unknown]
  - Vomiting [Unknown]
  - Dizziness [Unknown]
  - Pain in jaw [Unknown]
  - Asthenia [Unknown]
  - Pain [Recovering/Resolving]
  - Arthralgia [Recovering/Resolving]
  - Pyrexia [Recovering/Resolving]
